FAERS Safety Report 7060319-5 (Version None)
Quarter: 2010Q4

REPORT INFORMATION
  Report Type: 
  Country: None (occurrence: None)
  Receive Date: 20101025
  Receipt Date: 20101018
  Transmission Date: 20110411
  Serious: Yes (Death)
  Sender: FDA-Public Use
  Company Number: A0887510A

PATIENT
  Age: 67 Year
  Sex: Female

DRUGS (2)
  1. PROMACTA [Suspect]
  2. CORTICOSTEROIDS [Concomitant]

REACTIONS (1)
  - DEATH [None]
